FAERS Safety Report 9369355 (Version 1)
Quarter: 2013Q2

REPORT INFORMATION
  Report Type: Spontaneous
  Country: FR (occurrence: FR)
  Receive Date: 20130626
  Receipt Date: 20130626
  Transmission Date: 20140414
  Serious: Yes (Hospitalization)
  Sender: FDA-Public Use
  Company Number: FR-009507513-1306FRA007931

PATIENT
  Age: 78 Year
  Sex: Female

DRUGS (8)
  1. FOSAVANCE [Suspect]
     Dosage: 1 DF, QW
     Route: 048
  2. TRANXENE [Suspect]
     Dosage: 20 MG, UNKNOWN
     Route: 048
     Dates: end: 20080619
  3. DAFLON [Suspect]
     Dosage: 1000 MG, UNKNOWN
     Route: 048
     Dates: end: 20080819
  4. LODOZ [Suspect]
     Dosage: 1 DF, QD
  5. CATAPRESSAN [Suspect]
     Dosage: 0.15 MG, QD
     Route: 048
  6. TRIVASTAL [Suspect]
     Dosage: 50 MG, QD
     Route: 048
  7. SEROPRAM [Suspect]
     Dosage: 20 MG, QD
     Route: 048
  8. ZOLPIDEM TARTRATE [Suspect]
     Dosage: 10 MG, QD
     Route: 048

REACTIONS (1)
  - Pemphigoid [Recovering/Resolving]
